FAERS Safety Report 7504264-7 (Version None)
Quarter: 2011Q2

REPORT INFORMATION
  Report Type: 
  Country: None (occurrence: None)
  Receive Date: 20110525
  Receipt Date: 20110516
  Transmission Date: 20111010
  Serious: Yes (Death, Hospitalization, Other)
  Sender: FDA-Public Use
  Company Number: US-BAXTER-2011BH013861

PATIENT
  Age: 77 Year
  Sex: Female

DRUGS (1)
  1. DIANEAL [Suspect]
     Indication: PERITONEAL DIALYSIS
     Route: 033
     Dates: end: 20110101

REACTIONS (4)
  - RECTAL HAEMORRHAGE [None]
  - CARDIAC FAILURE CONGESTIVE [None]
  - PERITONITIS [None]
  - INTESTINAL ISCHAEMIA [None]
